FAERS Safety Report 15154700 (Version 2)
Quarter: 2019Q2

REPORT INFORMATION
  Report Type: Spontaneous
  Country: PL (occurrence: PL)
  Receive Date: 20180717
  Receipt Date: 20190522
  Transmission Date: 20190711
  Serious: Yes (Hospitalization)
  Sender: FDA-Public Use
  Company Number: PL-MYLANLABS-2018M1050605

PATIENT
  Age: 59 Year
  Sex: Male

DRUGS (13)
  1. SULFASALAZINE. [Suspect]
     Active Substance: SULFASALAZINE
     Indication: IMMUNOSUPPRESSANT DRUG THERAPY
     Dosage: UNK
     Route: 065
  2. PREDNISONE. [Suspect]
     Active Substance: PREDNISONE
     Dosage: 30 MG, QD
     Route: 065
  3. CYCLOSPORIN A [Suspect]
     Active Substance: CYCLOSPORINE
     Indication: IMMUNOSUPPRESSANT DRUG THERAPY
     Dosage: INDUCTION THERAPY
     Route: 065
  4. CYCLOSPORIN A [Suspect]
     Active Substance: CYCLOSPORINE
     Dosage: MAINTENANCE THERAPY
     Route: 065
  5. LINCOMYCIN HYDROCHLORIDE. [Suspect]
     Active Substance: LINCOMYCIN HYDROCHLORIDE
     Indication: RHINITIS
     Dosage: EMPIRIC TREATMENT
  6. CLINDAMYCIN. [Suspect]
     Active Substance: CLINDAMYCIN
     Indication: EAR LOBE INFECTION
  7. PREDNISONE. [Suspect]
     Active Substance: PREDNISONE
     Dosage: MAINTENANCE DOSE
     Route: 065
  8. AMOXICILLIN. [Suspect]
     Active Substance: AMOXICILLIN
     Indication: EAR LOBE INFECTION
     Dosage: EMPIRIC TREATMENT
  9. AMOXICILLIN. [Suspect]
     Active Substance: AMOXICILLIN
     Indication: RHINITIS
  10. LINCOMYCIN HYDROCHLORIDE. [Suspect]
     Active Substance: LINCOMYCIN HYDROCHLORIDE
     Indication: EAR LOBE INFECTION
  11. PREDNISONE. [Suspect]
     Active Substance: PREDNISONE
     Indication: IMMUNOSUPPRESSANT DRUG THERAPY
     Dosage: 15 MG, UNK
     Route: 065
  12. CLINDAMYCIN. [Suspect]
     Active Substance: CLINDAMYCIN
     Indication: RHINITIS
     Dosage: EMPIRIC TREATMENT
  13. PREDNISONE. [Suspect]
     Active Substance: PREDNISONE
     Dosage: INDUCTION DOSE
     Route: 065

REACTIONS (15)
  - Ear swelling [Recovering/Resolving]
  - Erythema [Recovering/Resolving]
  - White blood cell count increased [Recovering/Resolving]
  - Klebsiella infection [Recovering/Resolving]
  - Rhinitis [Recovering/Resolving]
  - Polychondritis [Recovering/Resolving]
  - C-reactive protein increased [Recovering/Resolving]
  - Red blood cell sedimentation rate increased [Recovering/Resolving]
  - Hypergammaglobulinaemia [Recovering/Resolving]
  - Bone pain [Recovering/Resolving]
  - Condition aggravated [Recovering/Resolving]
  - Candida infection [Recovering/Resolving]
  - Neutrophil count increased [Recovering/Resolving]
  - Ear pain [Recovering/Resolving]
  - Drug ineffective [Recovering/Resolving]

NARRATIVE: CASE EVENT DATE: 2015
